FAERS Safety Report 19166985 (Version 1)
Quarter: 2021Q2

REPORT INFORMATION
  Report Type: Spontaneous
  Country: DK (occurrence: DK)
  Receive Date: 20210421
  Receipt Date: 20210421
  Transmission Date: 20210717
  Serious: Yes (Hospitalization)
  Sender: FDA-Public Use
  Company Number: DK-009507513-2104DNK004034

PATIENT
  Age: 61 Year
  Sex: Male
  Weight: 104 kg

DRUGS (2)
  1. KEYTRUDA [Suspect]
     Active Substance: PEMBROLIZUMAB
     Indication: NON-SMALL CELL LUNG CANCER
     Dosage: STRENGTH: 50 MG, 200MG, Q3W
     Route: 042
     Dates: start: 20200710
  2. COMIRNATY [Suspect]
     Active Substance: TOZINAMERAN
     Indication: COVID-19 IMMUNISATION
     Route: 030
     Dates: start: 20210223, end: 20210316

REACTIONS (6)
  - Productive cough [Recovered/Resolved]
  - Pneumonia [Recovered/Resolved]
  - Oropharyngeal pain [Recovered/Resolved]
  - Immune-mediated hepatitis [Recovering/Resolving]
  - Influenza [Recovered/Resolved]
  - Dyspnoea [Recovered/Resolved]

NARRATIVE: CASE EVENT DATE: 20210303
